FAERS Safety Report 9826703 (Version 1)
Quarter: 2014Q1

REPORT INFORMATION
  Report Type: Spontaneous
  Country: US (occurrence: US)
  Receive Date: 20140117
  Receipt Date: 20140117
  Transmission Date: 20141002
  Serious: No
  Sender: FDA-Public Use
  Company Number: US-BIOGENIDEC-2014BI000633

PATIENT
  Sex: Female
  Weight: 61 kg

DRUGS (17)
  1. TECFIDERA [Suspect]
     Indication: MULTIPLE SCLEROSIS
     Route: 048
  2. XALATAN [Concomitant]
  3. GABAPENTIN [Concomitant]
  4. ZANTAC [Concomitant]
  5. DIPHENHYDRAM [Concomitant]
  6. ALPRAZOLAM [Concomitant]
  7. IBUPROFEN [Concomitant]
  8. SPIRULINA [Concomitant]
  9. VITAMIN D [Concomitant]
  10. ACAI [Concomitant]
  11. TRINESSA [Concomitant]
  12. ALPHA LIPOIC [Concomitant]
  13. MAGNESIUM [Concomitant]
  14. CHLORELLA [Concomitant]
  15. CHLOROPHYLL [Concomitant]
  16. FLAX OIL [Concomitant]
  17. IRON [Concomitant]

REACTIONS (2)
  - Chest discomfort [Unknown]
  - Abdominal discomfort [Unknown]
